FAERS Safety Report 7661454 (Version 3)
Quarter: 2017Q4

REPORT INFORMATION
  Report Type: Spontaneous
  Country: HK (occurrence: HK)
  Receive Date: 20101109
  Receipt Date: 20171026
  Transmission Date: 20180321
  Serious: No
  Sender: FDA-Public Use
  Company Number: HK-BAYER-201045000GPV

PATIENT
  Age: 23 Year
  Sex: Female

DRUGS (1)
  1. BETAFERON [Suspect]
     Active Substance: INTERFERON BETA-1B
     Indication: MULTIPLE SCLEROSIS
     Route: 058
     Dates: start: 20060320

REACTIONS (4)
  - Device difficult to use [None]
  - Pyrexia [Recovering/Resolving]
  - Drug dose omission [None]
  - Influenza [Recovering/Resolving]

NARRATIVE: CASE EVENT DATE: 20101104
